FAERS Safety Report 8937117 (Version 1)
Quarter: 2012Q4

REPORT INFORMATION
  Report Type: Spontaneous
  Country: US (occurrence: None)
  Receive Date: 20121128
  Receipt Date: 20121128
  Transmission Date: 20130627
  Serious: Yes (Other)
  Sender: FDA-Public Use
  Company Number: None

PATIENT
  Age: 52 Year
  Sex: Female
  Weight: 87.09 kg

DRUGS (1)
  1. EPIDUO [Suspect]
     Indication: ACNE
     Dosage: dab 1/day top
     Dates: start: 20121121, end: 20121123

REACTIONS (4)
  - Erythema [None]
  - Blister [None]
  - Pruritus [None]
  - Swelling face [None]
